FAERS Safety Report 14989776 (Version 1)
Quarter: 2018Q2

REPORT INFORMATION
  Report Type: Spontaneous
  Country: US (occurrence: US)
  Receive Date: 20180608
  Receipt Date: 20180608
  Transmission Date: 20180711
  Serious: No
  Sender: FDA-Public Use
  Company Number: US-ROCHE-1952050

PATIENT
  Age: 53 Year
  Sex: Female

DRUGS (2)
  1. ACTEMRA [Suspect]
     Active Substance: TOCILIZUMAB
     Route: 058
     Dates: start: 20161110
  2. ACTEMRA [Suspect]
     Active Substance: TOCILIZUMAB
     Indication: RHEUMATOID ARTHRITIS
     Route: 058
     Dates: start: 20161115

REACTIONS (12)
  - Nausea [Unknown]
  - Injection site swelling [Unknown]
  - Injection site erythema [Unknown]
  - White blood cell count increased [Unknown]
  - Ill-defined disorder [Unknown]
  - Arthritis [Unknown]
  - Drug ineffective [Unknown]
  - Asthenia [Unknown]
  - Injection site pruritus [Unknown]
  - Dysphagia [Unknown]
  - Fluid retention [Unknown]
  - Fatigue [Unknown]

NARRATIVE: CASE EVENT DATE: 20170525
